FAERS Safety Report 14590627 (Version 2)
Quarter: 2023Q2

REPORT INFORMATION
  Report Type: Other
  Country: US (occurrence: US)
  Receive Date: 20180302
  Receipt Date: 20230509
  Transmission Date: 20230721
  Serious: Yes (Hospitalization)
  Sender: FDA-Public Use
  Company Number: NAV000053

PATIENT
  Age: 32 Year
  Sex: Male

DRUGS (2)
  1. FAMOTIDINE [Suspect]
     Active Substance: FAMOTIDINE
     Indication: Euphoric mood
     Dosage: MULTIPLE DOSES OF FAMOTIDINE DAILY (ESTIMATED UP TO 500 MG PER DAY)
  2. LOPERAMIDE [Suspect]
     Active Substance: LOPERAMIDE
     Indication: Euphoric mood
     Dosage: UP TO 200 MG DAILY (MAXIMUM RECOMMENDED DOSAGE 16 MG PER DAY)

REACTIONS (3)
  - Ventricular tachycardia [Recovered/Resolved]
  - Overdose [Unknown]
  - Toxicity to various agents [Recovered/Resolved]
